FAERS Safety Report 9842915 (Version 1)
Quarter: 2013Q4

REPORT INFORMATION
  Report Type: Spontaneous
  Country: US (occurrence: None)
  Receive Date: 20131223
  Receipt Date: 20131223
  Transmission Date: 20140711
  Serious: No
  Sender: FDA-Public Use
  Company Number: 217296LEO

PATIENT
  Age: 55 Year
  Sex: Female

DRUGS (4)
  1. PICATO GEL [Suspect]
     Indication: PRECANCEROUS SKIN LESION
     Dosage: 1 IN 1 D, ON THE ARM
     Dates: start: 20120411, end: 20120412
  2. LISINOPRIL (LISINOPRIL) [Concomitant]
  3. TEGRETOL (CARBAMAZEPINE) UNKNOWN [Concomitant]
  4. DEXILANT (DEXALANSOPRAZOLE) [Concomitant]

REACTIONS (3)
  - Application site pruritus [None]
  - Application site scab [None]
  - Skin discolouration [None]
